FAERS Safety Report 7256321-0 (Version None)
Quarter: 2011Q1

REPORT INFORMATION
  Report Type: 
  Country: None (occurrence: None)
  Receive Date: 20110129
  Receipt Date: 20100506
  Transmission Date: 20110831
  Serious: No
  Sender: FDA-Public Use
  Company Number: US-ABBOTT-10P-163-0639796-00

PATIENT
  Sex: Female
  Weight: 121.22 kg

DRUGS (3)
  1. HUMIRA [Suspect]
     Indication: ARTHRITIS
  2. HUMIRA [Suspect]
     Indication: CROHN'S DISEASE
     Dosage: 80 MG DAY 15
     Dates: start: 20100331
  3. PREDNISONE [Concomitant]
     Indication: PRODUCT USED FOR UNKNOWN INDICATION

REACTIONS (4)
  - UPPER RESPIRATORY TRACT INFECTION [None]
  - TONSILLITIS [None]
  - INJECTION SITE HAEMATOMA [None]
  - CONTUSION [None]
